FAERS Safety Report 8742167 (Version 2)
Quarter: 2013Q1

REPORT INFORMATION
  Report Type: Spontaneous
  Country: GB (occurrence: GB)
  Receive Date: 20120824
  Receipt Date: 20130110
  Transmission Date: 20140127
  Serious: Yes (Hospitalization, Other)
  Sender: FDA-Public Use
  Company Number: PHHY2008GB14004

PATIENT
  Age: 32 Year
  Sex: Female

DRUGS (29)
  1. CLOZARIL [Suspect]
     Indication: SCHIZOPHRENIA
     Dosage: 100 MG,(25 MANE AND 75 MG NOCTE)
     Dates: start: 2005
  2. CLOZARIL [Suspect]
     Dosage: 125 MG, (25 MG MANE AND 100 MG NOCTE)
  3. CLOZARIL [Suspect]
     Dosage: 250 MG, (100 MG MANE AND 150 MG NOCTE)
     Dates: end: 200806
  4. ARIPIPRAZOLE [Concomitant]
     Dosage: 30 MG, BID
  5. ARIPIPRAZOLE [Concomitant]
     Dosage: 10 MG, QD (NOCTE))
  6. ARIPIPRAZOLE [Concomitant]
     Dosage: 15 MG,
  7. ARIPIPRAZOLE [Concomitant]
     Dosage: UNK UKN, UNK
  8. TRAZODONE [Concomitant]
     Dosage: 200 MG, UNK
  9. TRAZODONE [Concomitant]
     Dosage: 300 MG, UNK
  10. TRAZODONE [Concomitant]
     Dosage: 400 MG, UNK
  11. LITHIUM CARBONATE [Concomitant]
     Dosage: 800 MG, QD
  12. LITHIUM CARBONATE [Concomitant]
     Dosage: 1000 MG,(NOCTE)
  13. VALPROATE SODIUM [Concomitant]
     Dosage: 500 MG,(MANE)
  14. VALPROATE SODIUM [Concomitant]
     Dosage: 1 MG,(NOCTE)
  15. VALPROATE SODIUM [Concomitant]
     Dosage: UNK UKN, UNK
  16. VALPROATE SODIUM [Concomitant]
     Dosage: UNK UKN, UNK
  17. VALPROATE SODIUM [Concomitant]
     Dosage: 1.2 G, BID
  18. VALPROATE SODIUM [Concomitant]
     Dosage: 700 MG, BID
  19. PROCYCLIDINE [Concomitant]
     Dosage: 2.5 MG, BID
  20. PROPRANOLOL [Concomitant]
     Dosage: 40 MG, BID
  21. FESOTERODINE FUMARATE [Concomitant]
     Dosage: 8 MG, QD
  22. FLUOXETIN [Concomitant]
     Dosage: 20 MG, QD
  23. HALOPERIDOL [Concomitant]
     Dosage: UNK UKN, UNK
  24. SULPIRIDE [Concomitant]
     Dosage: UNK UKN, UNK
  25. SULPIRIDE [Concomitant]
     Dosage: 800 MG, BID
  26. SULPIRIDE [Concomitant]
     Dosage: 1.2 G, UNK
  27. SERTRALINE [Concomitant]
     Dosage: 50 MG, UNK
  28. DIAZEPAM [Concomitant]
     Dosage: UNK UKN, UNK
  29. DIAZEPAM [Concomitant]
     Dosage: 5 MG, BID (PRN)

REACTIONS (20)
  - Schizophrenia [Unknown]
  - Hallucination, auditory [Unknown]
  - Depressed mood [Unknown]
  - Psychotic disorder [Unknown]
  - Suspiciousness [Unknown]
  - Morbid thoughts [Unknown]
  - Thought blocking [Unknown]
  - Tearfulness [Unknown]
  - Poverty of speech [Unknown]
  - Nervousness [Unknown]
  - Delusion [Unknown]
  - Anxiety [Unknown]
  - Neutropenia [Recovered/Resolved]
  - Neutrophil count decreased [Recovered/Resolved]
  - Thirst [Unknown]
  - Abdominal discomfort [Recovered/Resolved]
  - White blood cell count decreased [Unknown]
  - Body temperature increased [Unknown]
  - Platelet count decreased [Unknown]
  - Hyperhidrosis [Unknown]
